FAERS Safety Report 7387194-3 (Version None)
Quarter: 2011Q1

REPORT INFORMATION
  Report Type: 
  Country: None (occurrence: None)
  Receive Date: 20110331
  Receipt Date: 20110324
  Transmission Date: 20110831
  Serious: Yes (Hospitalization)
  Sender: FDA-Public Use
  Company Number: B0708994A

PATIENT
  Sex: Male
  Weight: 71 kg

DRUGS (8)
  1. DIFLUCAN [Concomitant]
     Dosage: 100MG PER DAY
     Route: 048
     Dates: start: 20040223, end: 20040229
  2. ENDOXAN [Concomitant]
     Indication: STEM CELL TRANSPLANT
     Dosage: 3600MG PER DAY
     Route: 042
     Dates: start: 20040223, end: 20040224
  3. DECADRON [Concomitant]
     Indication: STEM CELL TRANSPLANT
     Dosage: 40MG PER DAY
     Dates: start: 20040223, end: 20040226
  4. KYTRIL [Concomitant]
     Indication: STEM CELL TRANSPLANT
     Dosage: 2IUAX PER DAY
     Route: 042
     Dates: start: 20040223, end: 20040226
  5. LASTET [Concomitant]
     Indication: STEM CELL TRANSPLANT
     Dosage: 800MG PER DAY
     Route: 042
     Dates: start: 20040223, end: 20040225
  6. TAKEPRON [Concomitant]
     Dosage: 15MG PER DAY
     Route: 048
     Dates: start: 20040220, end: 20040413
  7. ALKERAN [Suspect]
     Indication: STEM CELL TRANSPLANT
     Dosage: 130MGM2 PER DAY
     Route: 042
     Dates: start: 20040226, end: 20040226
  8. OZEX [Concomitant]
     Dosage: 450MG PER DAY
     Route: 048
     Dates: start: 20040223, end: 20040316

REACTIONS (2)
  - PYREXIA [None]
  - C-REACTIVE PROTEIN INCREASED [None]
